FAERS Safety Report 8608993-3 (Version None)
Quarter: 2012Q3

REPORT INFORMATION
  Report Type: 
  Country: None (occurrence: None)
  Receive Date: 20120821
  Receipt Date: 20120810
  Transmission Date: 20120928
  Serious: Yes (Congenital Anomaly)
  Sender: FDA-Public Use
  Company Number: US-GLAXOSMITHKLINE-A0990120A

PATIENT
  Sex: Female

DRUGS (3)
  1. INDOCIN [Concomitant]
     Route: 064
  2. VITAMIN TAB [Concomitant]
     Route: 064
  3. PAXIL [Suspect]
     Indication: PANIC DISORDER
     Dosage: 40MG UNKNOWN
     Route: 064
     Dates: start: 19990819, end: 20000501

REACTIONS (4)
  - CONGENITAL NEUROLOGICAL DISORDER [None]
  - CONVULSION [None]
  - CEREBRAL DISORDER [None]
  - FOETAL EXPOSURE DURING PREGNANCY [None]
